FAERS Safety Report 12058119 (Version 2)
Quarter: 2016Q2

REPORT INFORMATION
  Report Type: Spontaneous
  Country: US (occurrence: US)
  Receive Date: 20160210
  Receipt Date: 20160630
  Transmission Date: 20160815
  Serious: Yes (Other)
  Sender: FDA-Public Use
  Company Number: US-BEH-2016058498

PATIENT
  Age: 60 Year
  Sex: Female
  Weight: 74.84 kg

DRUGS (14)
  1. DIPHENHYDRAMINE. [Concomitant]
     Active Substance: DIPHENHYDRAMINE
  2. HIZENTRA [Suspect]
     Active Substance: HUMAN IMMUNOGLOBULIN G
     Dosage: 10 G, QW
     Route: 058
  3. IBUPROFEN. [Concomitant]
     Active Substance: IBUPROFEN
  4. DULERA [Concomitant]
     Active Substance: FORMOTEROL FUMARATE DIHYDRATE\MOMETASONE FUROATE
     Dosage: 200 MG, UNK
     Route: 065
  5. HIZENTRA [Suspect]
     Active Substance: HUMAN IMMUNOGLOBULIN G
     Indication: CONGENITAL HYPOGAMMAGLOBULINAEMIA
     Dosage: 10 G, QW
     Route: 058
  6. LORATADINE. [Concomitant]
     Active Substance: LORATADINE
     Dosage: 10 MG, UNK
     Route: 065
  7. HIZENTRA [Suspect]
     Active Substance: HUMAN IMMUNOGLOBULIN G
     Dosage: 10 G, QW (20%)
     Route: 058
     Dates: start: 20140102
  8. LORATADINE. [Concomitant]
     Active Substance: LORATADINE
  9. ASPIRIN. [Concomitant]
     Active Substance: ASPIRIN
  10. ASPIRIN. [Concomitant]
     Active Substance: ASPIRIN
  11. ACETAMINOPHEN. [Concomitant]
     Active Substance: ACETAMINOPHEN
  12. DIAZEPAM. [Concomitant]
     Active Substance: DIAZEPAM
  13. EPIPEN [Concomitant]
     Active Substance: EPINEPHRINE
  14. DIAZEPAM. [Concomitant]
     Active Substance: DIAZEPAM

REACTIONS (1)
  - Breast mass [Recovered/Resolved]

NARRATIVE: CASE EVENT DATE: 20160122
